FAERS Safety Report 4576291-3 (Version None)
Quarter: 2005Q1

REPORT INFORMATION
  Report Type: 
  Country: None (occurrence: None)
  Receive Date: 20050207
  Receipt Date: 20050124
  Transmission Date: 20050727
  Serious: Yes (Hospitalization)
  Sender: FDA-Public Use
  Company Number: 2005019943

PATIENT
  Age: 57 Year
  Sex: Female

DRUGS (9)
  1. ALDACTONE [Suspect]
     Dosage: 1 DOSE FORM (DAILY) ORAL
     Route: 048
     Dates: start: 20030315
  2. DIGOXIN [Suspect]
     Indication: BRONCHOPNEUMOPATHY
     Dosage: 1 DF (DAILY )ORAL
     Route: 048
     Dates: start: 20040401, end: 20040428
  3. AMIODARONE HCL [Suspect]
     Dosage: 200 MG (200 MG DAILY) ORAL
     Route: 048
  4. LISINOPRIL [Concomitant]
  5. FUROSEMIDE (FUROSEMIDE) [Concomitant]
  6. FERROUS SULFATE TAB [Concomitant]
  7. FOLIC ACID [Concomitant]
  8. ALLOPURINOL [Concomitant]
  9. FLUINDIONE (FLUINDIONE) [Concomitant]

REACTIONS (14)
  - BLOOD UREA DECREASED [None]
  - BRONCHOPNEUMOPATHY [None]
  - CARDIOACTIVE DRUG LEVEL INCREASED [None]
  - CHROMATOPSIA [None]
  - DRUG INTERACTION [None]
  - HALLUCINATION [None]
  - HEADACHE [None]
  - HYPOTENSION [None]
  - INTERNATIONAL NORMALISED RATIO INCREASED [None]
  - MYALGIA [None]
  - NAUSEA [None]
  - OVERDOSE [None]
  - SCOTOMA [None]
  - VISUAL DISTURBANCE [None]
